FAERS Safety Report 17186771 (Version 3)
Quarter: 2020Q1

REPORT INFORMATION
  Report Type: Report from Study
  Country: KR (occurrence: KR)
  Receive Date: 20191220
  Receipt Date: 20200203
  Transmission Date: 20200409
  Serious: Yes (Death, Hospitalization)
  Sender: FDA-Public Use
  Company Number: NVSC2019KR060763

PATIENT
  Age: 80 Year
  Sex: Male
  Weight: 59.9 kg

DRUGS (11)
  1. HUMULIN R [Concomitant]
     Active Substance: INSULIN HUMAN
     Indication: HYPERGLYCAEMIA
     Dosage: 0.08 ML, ONE TIME
     Route: 058
     Dates: start: 20191202, end: 20191202
  2. ALPELISIB [Suspect]
     Active Substance: ALPELISIB
     Indication: HEAD AND NECK CANCER
     Dosage: 350 MG, QD
     Route: 048
     Dates: start: 20190923
  3. MUTERAN [Concomitant]
     Active Substance: ACETYLCYSTEINE
     Indication: PRODUCTIVE COUGH
     Dosage: 200 MG, TID
     Route: 048
     Dates: start: 20191022, end: 20191207
  4. KEROMIN [Concomitant]
     Indication: CANCER PAIN
     Dosage: 30 MG, QD
     Route: 042
     Dates: start: 20191213
  5. WINUF PERI [Concomitant]
     Active Substance: AMINO ACIDS\DEXTROSE\ELECTROLYTES NOS\SOYBEAN OIL\VITAMINS
     Indication: DECREASED APPETITE
     Dosage: 2020 ML, QD
     Route: 042
     Dates: start: 20191208, end: 20191212
  6. CAFSOL [Concomitant]
     Indication: DECREASED APPETITE
     Dosage: 500 ML, QD
     Route: 042
     Dates: start: 20191205, end: 20191206
  7. TOUJEO [Concomitant]
     Active Substance: INSULIN GLARGINE
     Indication: HYPERGLYCAEMIA
     Dosage: 1 PEN, AS NEEDED
     Route: 058
     Dates: start: 20191203
  8. SMOFKABIVEN [Concomitant]
     Active Substance: AMINO ACIDS\DEXTROSE\ELECTROLYTES NOS\SOYBEAN OIL
     Indication: DECREASED APPETITE
     Dosage: 1904 ML, ONE TIME
     Route: 042
     Dates: start: 20191207, end: 20191207
  9. APIDRA [Concomitant]
     Active Substance: INSULIN GLULISINE
     Indication: HYPERGLYCAEMIA
     Dosage: 1 PEN, AS NEEDED
     Route: 058
     Dates: start: 20191203, end: 20191207
  10. TRIDOL [Concomitant]
     Active Substance: TRAMADOL HYDROCHLORIDE
     Indication: CANCER PAIN
     Dosage: 50 MG, QD
     Route: 042
     Dates: start: 20191211, end: 20191211
  11. ALPELISIB [Suspect]
     Active Substance: ALPELISIB
     Indication: OESOPHAGEAL CARCINOMA

REACTIONS (2)
  - Pneumonia [Fatal]
  - Influenza [Recovered/Resolved]

NARRATIVE: CASE EVENT DATE: 20191202
